FAERS Safety Report 12463500 (Version 2)
Quarter: 2016Q3

REPORT INFORMATION
  Report Type: Report from Study
  Country: DK (occurrence: DK)
  Receive Date: 20160614
  Receipt Date: 20160712
  Transmission Date: 20161109
  Serious: Yes (Hospitalization)
  Sender: FDA-Public Use
  Company Number: DK-ROCHE-1740166

PATIENT
  Age: 12 Year
  Sex: Female
  Weight: 71.7 kg

DRUGS (21)
  1. CATAPRESAN [Concomitant]
     Active Substance: CLONIDINE
     Indication: PAIN
     Route: 048
  2. MOVENTIG [Concomitant]
     Active Substance: NALOXEGOL OXALATE
     Route: 048
     Dates: start: 20160419
  3. GRANISETRON [Concomitant]
     Active Substance: GRANISETRON
     Indication: NAUSEA
     Route: 065
     Dates: start: 20160502
  4. CEFAMOX [Concomitant]
     Route: 065
     Dates: start: 20160421, end: 20160428
  5. ATEZOLIZUMAB [Suspect]
     Active Substance: ATEZOLIZUMAB
     Indication: NEOPLASM
     Dosage: MOST RECENT DOSE WAS 1080 MG ADMINSITERED ON 06/APR/2016
     Route: 042
     Dates: start: 20160316
  6. CELECOXIB. [Concomitant]
     Active Substance: CELECOXIB
     Indication: PAIN
     Route: 048
  7. MATRIFEN [Concomitant]
     Active Substance: FENTANYL
     Indication: PAIN
     Route: 062
     Dates: start: 20160427, end: 20160518
  8. FLOXACILLIN SODIUM [Concomitant]
     Active Substance: FLUCLOXACILLIN SODIUM ANHYDROUS
     Route: 065
     Dates: start: 20160419, end: 20160421
  9. PARACETAMOL [Concomitant]
     Active Substance: ACETAMINOPHEN
     Indication: PAIN
     Route: 048
  10. NALOXONE [Concomitant]
     Active Substance: NALOXONE
     Indication: CONSTIPATION
     Route: 048
     Dates: start: 20160331
  11. CATAPRES [Concomitant]
     Active Substance: CLONIDINE HYDROCHLORIDE
     Indication: PAIN
     Route: 042
     Dates: start: 20160427
  12. MORPHINE [Concomitant]
     Active Substance: MORPHINE
     Indication: PAIN
     Route: 048
  13. MATRIFEN [Concomitant]
     Active Substance: FENTANYL
     Route: 062
     Dates: start: 20160518
  14. TARGIN [Concomitant]
     Active Substance: NALOXONE HYDROCHLORIDE\OXYCODONE HYDROCHLORIDE
     Indication: PAIN
     Route: 065
     Dates: start: 20160413, end: 20160518
  15. BETAMETHASON [Concomitant]
     Active Substance: BETAMETHASONE
     Indication: NAUSEA
     Route: 048
     Dates: start: 20160517, end: 20160518
  16. CLONIDIN [Concomitant]
     Active Substance: CLONIDINE
     Indication: PAIN
     Route: 042
     Dates: start: 20160427
  17. LAXOBERAL [Concomitant]
     Active Substance: SODIUM PICOSULFATE
     Indication: CONSTIPATION
     Route: 065
     Dates: start: 20160414
  18. OXYCODON [Concomitant]
     Active Substance: OXYCODONE
     Indication: PAIN
     Route: 065
     Dates: start: 20160329, end: 20160427
  19. KALEORID [Concomitant]
     Active Substance: POTASSIUM CHLORIDE
     Indication: BLOOD POTASSIUM DECREASED
     Route: 048
  20. METHADONE [Concomitant]
     Active Substance: METHADONE HYDROCHLORIDE
     Indication: PAIN
     Route: 065
     Dates: start: 20160429
  21. FLUCONAZOL [Concomitant]
     Active Substance: FLUCONAZOLE
     Route: 065
     Dates: start: 20160511

REACTIONS (2)
  - Dehydration [Recovering/Resolving]
  - Fatigue [Not Recovered/Not Resolved]

NARRATIVE: CASE EVENT DATE: 20160403
